FAERS Safety Report 18220999 (Version 3)
Quarter: 2020Q4

REPORT INFORMATION
  Report Type: Other
  Country: EG (occurrence: EG)
  Receive Date: 20200902
  Receipt Date: 20201001
  Transmission Date: 20210113
  Serious: Yes (Other)
  Sender: FDA-Public Use
  Company Number: EG-ROCHE-2666391

PATIENT
  Age: 27 Year
  Sex: Male
  Weight: 81 kg

DRUGS (2)
  1. CEFTRIAXONE. [Concomitant]
     Active Substance: CEFTRIAXONE
  2. OCREVUS [Suspect]
     Active Substance: OCRELIZUMAB
     Indication: MULTIPLE SCLEROSIS
     Dosage: ONGOING
     Route: 042
     Dates: start: 20191215

REACTIONS (5)
  - Somnolence [Not Recovered/Not Resolved]
  - COVID-19 [Recovered/Resolved]
  - Lung abscess [Recovering/Resolving]
  - Pyrexia [Recovered/Resolved]
  - Movement disorder [Not Recovered/Not Resolved]

NARRATIVE: CASE EVENT DATE: 202006
